FAERS Safety Report 9690442 (Version 1)
Quarter: 2013Q4

REPORT INFORMATION
  Report Type: Spontaneous
  Country: GB (occurrence: None)
  Receive Date: 20131113
  Receipt Date: 20131113
  Transmission Date: 20140711
  Serious: No
  Sender: FDA-Public Use
  Company Number: SYM-2013-12542

PATIENT
  Sex: 0

DRUGS (4)
  1. FLUOROURACIL (FLUOROURACIL) (FLUOROURACIL) [Suspect]
     Indication: MALIGNANT URINARY TRACT NEOPLASM
     Dosage: 500 MG/M2, EVERY OTHER WEEK
     Route: 040
  2. MITOMYCIN (MITOMYCIN) (MITOMYCIN) [Suspect]
     Indication: MALIGNANT URINARY TRACT NEOPLASM
     Dosage: 6MG/M2 EVERY CYCLE
     Route: 042
  3. IRINOTECAN (IRINOTECAN) (IRINOTECAN) [Suspect]
     Indication: MALIGNANT URINARY TRACT NEOPLASM
  4. FOLINIC ACID (FOLINIC ACID) (FOLINIC ACID) [Suspect]
     Indication: MALIGNANT URINARY TRACT NEOPLASM
     Route: 040

REACTIONS (1)
  - Neutropenic sepsis [None]
